FAERS Safety Report 9183960 (Version 1)
Quarter: 2013Q1

REPORT INFORMATION
  Report Type: Spontaneous
  Country: US (occurrence: US)
  Receive Date: 20130322
  Receipt Date: 20130322
  Transmission Date: 20140127
  Serious: No
  Sender: FDA-Public Use
  Company Number: US-BRISTOL-MYERS SQUIBB COMPANY-16676892

PATIENT
  Age: 56 Year
  Sex: Female
  Weight: 43.08 kg

DRUGS (4)
  1. ERBITUX [Suspect]
     Indication: COLON CANCER
     Dates: start: 2009
  2. PROZAC [Concomitant]
  3. ALPRAZOLAM [Concomitant]
  4. PROCHLORPERAZINE [Concomitant]

REACTIONS (4)
  - Laceration [Recovering/Resolving]
  - Rash [Recovered/Resolved]
  - Alopecia [Unknown]
  - Diarrhoea [Unknown]
